FAERS Safety Report 5261356-3 (Version None)
Quarter: 2007Q1

REPORT INFORMATION
  Report Type: 
  Country: None (occurrence: None)
  Receive Date: 20070307
  Receipt Date: 20070221
  Transmission Date: 20070707
  Serious: Yes (Other)
  Sender: FDA-Public Use
  Company Number: 2007PV028201

PATIENT
  Age: 47 Year
  Sex: Female
  Weight: 80.7403 kg

DRUGS (15)
  1. BYETTA [Suspect]
     Indication: DIABETES MELLITUS NON-INSULIN-DEPENDENT
     Dosage: SEE IMAGE
     Route: 058
     Dates: start: 20061110, end: 20061201
  2. BYETTA [Suspect]
     Indication: DIABETES MELLITUS NON-INSULIN-DEPENDENT
     Dosage: SEE IMAGE
     Route: 058
     Dates: start: 20061201
  3. AMARYL [Concomitant]
  4. OXYCODONE [Concomitant]
  5. DEPAKOTE [Concomitant]
  6. PRIMIDONE [Concomitant]
  7. LASIX [Concomitant]
  8. ESTROPIPATE [Concomitant]
  9. FLEXERIL [Concomitant]
  10. LYRICA [Concomitant]
  11. PLAVIX [Concomitant]
  12. PROTONIX [Concomitant]
  13. XANAX [Concomitant]
  14. IMDUR [Concomitant]
  15. TOPROL-XL [Concomitant]

REACTIONS (3)
  - FREQUENT BOWEL MOVEMENTS [None]
  - PHARMACEUTICAL PRODUCT COMPLAINT [None]
  - WEIGHT DECREASED [None]
